FAERS Safety Report 24911012 (Version 1)
Quarter: 2025Q1

REPORT INFORMATION
  Report Type: Spontaneous
  Country: DZ (occurrence: DZ)
  Receive Date: 20250131
  Receipt Date: 20250131
  Transmission Date: 20250408
  Serious: Yes (Other)
  Sender: AMGEN
  Company Number: DZ-AMGEN-DZASP2025017122

PATIENT
  Age: 11 Year

DRUGS (1)
  1. BLINATUMOMAB [Suspect]
     Active Substance: BLINATUMOMAB
     Indication: Product used for unknown indication
     Route: 065

REACTIONS (2)
  - Generalised pustular psoriasis [Unknown]
  - General physical health deterioration [Unknown]
